FAERS Safety Report 9702155 (Version 4)
Quarter: 2014Q2

REPORT INFORMATION
  Report Type: Spontaneous
  Country: US (occurrence: None)
  Receive Date: 20131119
  Receipt Date: 20140516
  Transmission Date: 20141212
  Serious: Yes (Hospitalization)
  Sender: FDA-Public Use
  Company Number: 2009188

PATIENT
  Age: 90 Year
  Sex: Female
  Weight: 57.61 kg

DRUGS (15)
  1. BUPIVACAINE HCL [Suspect]
     Indication: PAIN
     Dosage: APPROXIMATELY 3 CC,  INJECTION TO RIGHT KNEE?
     Route: 050
     Dates: start: 20131029
  2. ORTHOVISC [Concomitant]
  3. BETADINE [Concomitant]
  4. ASPIRIN [Concomitant]
  5. LIDOCAINE [Concomitant]
  6. CALTRATE [Concomitant]
  7. DIVON [Concomitant]
  8. FOSAMAX [Concomitant]
  9. MACRODANTIN [Concomitant]
  10. MISOPROSTOL [Concomitant]
  11. TEGRETOL [Concomitant]
  12. VITAMIN D3 [Concomitant]
  13. VOLTAREN [Concomitant]
  14. MULTIVITAMINS, COMBINATIONS [Concomitant]
  15. GABAPENTIN [Concomitant]

REACTIONS (7)
  - Pain [None]
  - Staphylococcal infection [None]
  - Joint swelling [None]
  - Injection site pain [None]
  - Staphylococcal infection [None]
  - Injection site swelling [None]
  - Unevaluable event [None]
